FAERS Safety Report 13594510 (Version 1)
Quarter: 2017Q2

REPORT INFORMATION
  Report Type: Spontaneous
  Country: US (occurrence: US)
  Receive Date: 20170530
  Receipt Date: 20170530
  Transmission Date: 20170830
  Serious: No
  Sender: FDA-Public Use
  Company Number: US-TEVA-727170ACC

PATIENT
  Sex: Female

DRUGS (1)
  1. ROPINIROLE EXTENDED RELEASE [Suspect]
     Active Substance: ROPINIROLE

REACTIONS (1)
  - Product commingling [Unknown]
